FAERS Safety Report 5337691-7 (Version None)
Quarter: 2007Q2

REPORT INFORMATION
  Report Type: 
  Country: None (occurrence: None)
  Receive Date: 20070315
  Receipt Date: 20060410
  Transmission Date: 20071010
  Serious: Yes (Other)
  Sender: FDA-Public Use
  Company Number: PHEH2006US04765

PATIENT
  Age: 50 Year
  Sex: Female
  Weight: 106.6 kg

DRUGS (1)
  1. TRILEPTAL [Suspect]
     Indication: CONVULSION
     Dosage: 300 MG -- 2 QAM + 3 QHS
     Dates: start: 20050701

REACTIONS (2)
  - HUNGER [None]
  - WEIGHT INCREASED [None]
